FAERS Safety Report 17194302 (Version 1)
Quarter: 2019Q4

REPORT INFORMATION
  Report Type: Spontaneous
  Country: FR (occurrence: FR)
  Receive Date: 20191224
  Receipt Date: 20191224
  Transmission Date: 20200122
  Serious: Yes (Hospitalization, Other)
  Sender: FDA-Public Use
  Company Number: FR-SA-2018SA091466

PATIENT
  Age: 38 Year
  Sex: Male
  Weight: 68 kg

DRUGS (9)
  1. CLOTIAZEPAM [Suspect]
     Active Substance: CLOTIAZEPAM
     Indication: SUICIDE ATTEMPT
     Dosage: 450 MG,UNK
     Route: 048
     Dates: start: 20180126, end: 20180126
  2. VALIUM [Concomitant]
     Active Substance: DIAZEPAM
     Dosage: 3 DF,QD
     Route: 048
  3. TRUVADA [Concomitant]
     Active Substance: EMTRICITABINE\TENOFOVIR DISOPROXIL FUMARATE
     Dosage: 1 DF,UNK
     Route: 048
  4. ZOLPIDEM TARTRATE. [Suspect]
     Active Substance: ZOLPIDEM TARTRATE
     Indication: SUICIDE ATTEMPT
     Dosage: 140 MG,UNK
     Route: 048
     Dates: start: 20180126, end: 20180126
  5. NORSET [Concomitant]
     Active Substance: MIRTAZAPINE
     Dosage: 1 DF,QD
     Route: 048
  6. THERALENE [Suspect]
     Active Substance: TRIMEPRAZINE
     Indication: SUICIDE ATTEMPT
     Dosage: 120 ML,UNK
     Route: 048
     Dates: start: 20180126, end: 20180126
  7. EFFEXOR [Concomitant]
     Active Substance: VENLAFAXINE HYDROCHLORIDE
     Dosage: 3 DF,QD
     Route: 048
  8. NITRAZEPAM [Suspect]
     Active Substance: NITRAZEPAM
     Indication: SUICIDAL IDEATION
     Dosage: 300 MG,UNK
     Route: 048
     Dates: start: 20180126, end: 20180126
  9. VALIUM [Concomitant]
     Active Substance: DIAZEPAM
     Dosage: 1 DF,QD
     Route: 048

REACTIONS (2)
  - Hypotension [Recovered/Resolved]
  - Coma [Recovered/Resolved]

NARRATIVE: CASE EVENT DATE: 20180126
